FAERS Safety Report 15542257 (Version 1)
Quarter: 2018Q4

REPORT INFORMATION
  Report Type: Spontaneous
  Country: US (occurrence: US)
  Receive Date: 20181023
  Receipt Date: 20181023
  Transmission Date: 20190205
  Serious: No
  Sender: FDA-Public Use
  Company Number: US-BAUSCH-BL-2017-028565

PATIENT
  Age: 38 Year
  Sex: Female
  Weight: 53.57 kg

DRUGS (2)
  1. ACYCLOVIR. [Concomitant]
     Active Substance: ACYCLOVIR
     Indication: PRODUCT USED FOR UNKNOWN INDICATION
     Route: 065
  2. ZIRGAN [Suspect]
     Active Substance: GANCICLOVIR
     Indication: OPHTHALMIC HERPES SIMPLEX
     Dosage: ONE DROP IN THE RIGHT EYE EVERY TWO TO THREE HOURS
     Route: 047
     Dates: start: 20170925, end: 20170929

REACTIONS (1)
  - Drug ineffective [Recovered/Resolved]

NARRATIVE: CASE EVENT DATE: 20170925
